FAERS Safety Report 7270143-6 (Version None)
Quarter: 2011Q1

REPORT INFORMATION
  Report Type: 
  Country: None (occurrence: None)
  Receive Date: 20110202
  Receipt Date: 20110127
  Transmission Date: 20110831
  Serious: Yes (Other)
  Sender: FDA-Public Use
  Company Number: BR-US-EMD SERONO, INC.-7037977

PATIENT
  Sex: Female

DRUGS (5)
  1. EVISTA [Concomitant]
  2. MACRODANTIN [Concomitant]
  3. FLUOXETINE [Concomitant]
  4. FOLIC ACID [Concomitant]
  5. REBIF [Suspect]
     Indication: RELAPSING-REMITTING MULTIPLE SCLEROSIS
     Dates: start: 20020315

REACTIONS (1)
  - NEPHROLITHIASIS [None]
